FAERS Safety Report 24551991 (Version 1)
Quarter: 2024Q4

REPORT INFORMATION
  Report Type: Spontaneous
  Country: US (occurrence: US)
  Receive Date: 20241026
  Receipt Date: 20241026
  Transmission Date: 20250115
  Serious: Yes (Other)
  Sender: ALEXION PHARMACEUTICALS
  Company Number: US-AstraZeneca-CH-00724406A

PATIENT

DRUGS (42)
  1. FARXIGA [Suspect]
     Active Substance: DAPAGLIFLOZIN PROPANEDIOL
     Indication: Cardiac failure
     Dosage: UNK UNK, QD
  2. FARXIGA [Suspect]
     Active Substance: DAPAGLIFLOZIN PROPANEDIOL
     Dosage: UNK UNK, QD
  3. FARXIGA [Suspect]
     Active Substance: DAPAGLIFLOZIN PROPANEDIOL
     Dosage: UNK UNK, QD
  4. FARXIGA [Suspect]
     Active Substance: DAPAGLIFLOZIN PROPANEDIOL
     Dosage: UNK UNK, QD
  5. ALEVE [Concomitant]
     Active Substance: NAPROXEN SODIUM
  6. ALEVE [Concomitant]
     Active Substance: NAPROXEN SODIUM
     Route: 065
  7. BENADRYL [Concomitant]
     Active Substance: DIPHENHYDRAMINE HYDROCHLORIDE
  8. BENADRYL [Concomitant]
     Active Substance: DIPHENHYDRAMINE HYDROCHLORIDE
     Route: 065
  9. CLARITIN [Concomitant]
     Active Substance: LORATADINE
  10. CLARITIN [Concomitant]
     Active Substance: LORATADINE
     Route: 065
  11. COREG [Concomitant]
     Active Substance: CARVEDILOL
  12. COREG [Concomitant]
     Active Substance: CARVEDILOL
     Route: 065
  13. DIFLUCAN [Concomitant]
     Active Substance: FLUCONAZOLE
  14. DIFLUCAN [Concomitant]
     Active Substance: FLUCONAZOLE
     Route: 065
  15. EFFEXOR [Concomitant]
     Active Substance: VENLAFAXINE HYDROCHLORIDE
  16. EFFEXOR [Concomitant]
     Active Substance: VENLAFAXINE HYDROCHLORIDE
     Route: 065
  17. ESTRACE [Concomitant]
     Active Substance: ESTRADIOL
  18. ESTRACE [Concomitant]
     Active Substance: ESTRADIOL
     Route: 065
  19. GEMTESA [Concomitant]
     Active Substance: VIBEGRON
  20. GEMTESA [Concomitant]
     Active Substance: VIBEGRON
     Route: 065
  21. LEXAPRO [Concomitant]
     Active Substance: ESCITALOPRAM OXALATE
  22. LEXAPRO [Concomitant]
     Active Substance: ESCITALOPRAM OXALATE
     Route: 065
  23. LIPITOR [Suspect]
     Active Substance: ATORVASTATIN CALCIUM
  24. LIPITOR [Suspect]
     Active Substance: ATORVASTATIN CALCIUM
     Route: 065
  25. MACROBID [Concomitant]
     Active Substance: NITROFURANTOIN\NITROFURANTOIN MONOHYDRATE
  26. MACROBID [Concomitant]
     Active Substance: NITROFURANTOIN\NITROFURANTOIN MONOHYDRATE
     Route: 065
  27. MEDROL [Concomitant]
     Active Substance: METHYLPREDNISOLONE
  28. MEDROL [Concomitant]
     Active Substance: METHYLPREDNISOLONE
     Route: 065
  29. MOUNJARO [Concomitant]
     Active Substance: TIRZEPATIDE
  30. MOUNJARO [Concomitant]
     Active Substance: TIRZEPATIDE
     Route: 065
  31. NORCO [Concomitant]
     Active Substance: ACETAMINOPHEN\HYDROCODONE BITARTRATE
  32. NORCO [Concomitant]
     Active Substance: ACETAMINOPHEN\HYDROCODONE BITARTRATE
     Route: 065
  33. NOVOLOG [Concomitant]
     Active Substance: INSULIN ASPART
  34. NOVOLOG [Concomitant]
     Active Substance: INSULIN ASPART
     Route: 065
  35. PRINIVIL [Concomitant]
     Active Substance: LISINOPRIL
  36. PRINIVIL [Concomitant]
     Active Substance: LISINOPRIL
     Route: 065
  37. TRESIBA [Concomitant]
     Active Substance: INSULIN DEGLUDEC
  38. TRESIBA [Concomitant]
     Active Substance: INSULIN DEGLUDEC
     Route: 065
  39. TYLENOL [Concomitant]
     Active Substance: ACETAMINOPHEN
  40. TYLENOL [Concomitant]
     Active Substance: ACETAMINOPHEN
     Route: 050
  41. VITAMIN D NOS [Concomitant]
     Active Substance: CHOLECALCIFEROL\ERGOCALCIFEROL
  42. VITAMIN D NOS [Concomitant]
     Active Substance: CHOLECALCIFEROL\ERGOCALCIFEROL
     Route: 065

REACTIONS (3)
  - Urinary tract infection [Recovered/Resolved with Sequelae]
  - Urosepsis [Recovered/Resolved with Sequelae]
  - Neoplasm malignant [Recovered/Resolved with Sequelae]
